FAERS Safety Report 10242706 (Version 1)
Quarter: 2014Q2

REPORT INFORMATION
  Report Type: Spontaneous
  Country: US (occurrence: US)
  Receive Date: 20140617
  Receipt Date: 20140617
  Transmission Date: 20141212
  Serious: Yes (Hospitalization)
  Sender: FDA-Public Use
  Company Number: US-ABBVIE-14P-163-1245250-00

PATIENT
  Age: 78 Year
  Sex: Female
  Weight: 94.43 kg

DRUGS (4)
  1. HUMIRA [Suspect]
     Indication: RHEUMATOID ARTHRITIS
     Dates: start: 2010
  2. TOPAMAX [Suspect]
     Indication: HEADACHE
     Dates: start: 20140401, end: 20140515
  3. LEXAPRO [Suspect]
     Indication: DEPRESSION
     Dates: start: 20140401, end: 20140515
  4. TRAMADOL [Suspect]
     Indication: BACK PAIN
     Dates: start: 2014, end: 20140515

REACTIONS (11)
  - Dementia [Recovering/Resolving]
  - Vomiting [Recovering/Resolving]
  - Abasia [Recovering/Resolving]
  - Amnesia [Recovering/Resolving]
  - Activities of daily living impaired [Recovering/Resolving]
  - Toxicity to various agents [Recovering/Resolving]
  - Pseudodementia [Recovering/Resolving]
  - Encephalopathy [Recovering/Resolving]
  - Depression [Not Recovered/Not Resolved]
  - Headache [Recovering/Resolving]
  - Device issue [Unknown]
